FAERS Safety Report 4296088-1 (Version None)
Quarter: 2004Q1

REPORT INFORMATION
  Report Type: 
  Country: None (occurrence: None)
  Receive Date: 20040213
  Receipt Date: 20040213
  Transmission Date: 20041129
  Serious: Yes (Life-Threatening, Hospitalization)
  Sender: FDA-Public Use
  Company Number: None

PATIENT
  Age: 22 Year
  Sex: Male
  Weight: 68.9467 kg

DRUGS (4)
  1. ULTRAM [Suspect]
     Indication: DRUG ABUSER
     Dosage: ORAL
     Route: 048
     Dates: start: 20040108, end: 20040108
  2. VICODIN [Suspect]
     Indication: DRUG ABUSER
     Dosage: ORAL
     Route: 048
     Dates: start: 20040108, end: 20040108
  3. ULTRACET [Concomitant]
  4. SLEEPING PILL [Concomitant]

REACTIONS (10)
  - ALCOHOL USE [None]
  - BRONCHITIS [None]
  - CHRONIC OBSTRUCTIVE AIRWAYS DISEASE [None]
  - CONVULSION [None]
  - DIFFICULTY IN WALKING [None]
  - DRUG ABUSER [None]
  - HYPOXIA [None]
  - LOSS OF CONSCIOUSNESS [None]
  - SYNCOPE [None]
  - TACHYCARDIA [None]
